FAERS Safety Report 12499245 (Version 1)
Quarter: 2016Q2

REPORT INFORMATION
  Report Type: Spontaneous
  Country: US (occurrence: None)
  Receive Date: 20160624
  Receipt Date: 20160624
  Transmission Date: 20160815
  Serious: Yes (Other)
  Sender: FDA-Public Use
  Company Number: None

PATIENT
  Age: 52 Year
  Sex: Female
  Weight: 69.4 kg

DRUGS (2)
  1. KEFLEX [Suspect]
     Active Substance: CEPHALEXIN
     Indication: LOCALISED INFECTION
     Dosage: 500MG 2 PILLS 4X A DAY 4 X MOUTH
     Route: 048
     Dates: start: 20160529, end: 20160603
  2. MULTI VITAMIN (B12 DROPS) [Concomitant]

REACTIONS (4)
  - Lip pruritus [None]
  - Rash [None]
  - Lip oedema [None]
  - Lip disorder [None]

NARRATIVE: CASE EVENT DATE: 20160529
